FAERS Safety Report 6686969-3 (Version None)
Quarter: 2010Q2

REPORT INFORMATION
  Report Type: 
  Country: None (occurrence: None)
  Receive Date: 20100419
  Receipt Date: 20100319
  Transmission Date: 20101027
  Serious: Yes (Death, Hospitalization, Other)
  Sender: FDA-Public Use
  Company Number: US-BAXTER-2009BH019727

PATIENT
  Age: 80 Year
  Sex: Male

DRUGS (9)
  1. HEPARIN SODIUM INJECTION [Suspect]
     Indication: MITRAL VALVE REPLACEMENT
     Route: 042
     Dates: start: 20080207, end: 20080210
  2. ASPIRIN [Concomitant]
     Indication: DRUG USE FOR UNKNOWN INDICATION
     Route: 065
  3. NITROSTAT [Concomitant]
     Indication: DRUG USE FOR UNKNOWN INDICATION
     Route: 065
  4. RAMIPRIL [Concomitant]
     Indication: DRUG USE FOR UNKNOWN INDICATION
     Route: 065
  5. TERAZOSIN HCL [Concomitant]
     Indication: DRUG USE FOR UNKNOWN INDICATION
     Route: 065
  6. K-PHOS NEUTRAL [Concomitant]
     Indication: DRUG USE FOR UNKNOWN INDICATION
     Route: 065
  7. ERGOCALCIFEROL [Concomitant]
     Indication: DRUG USE FOR UNKNOWN INDICATION
     Route: 065
  8. MULTI-VITAMINS [Concomitant]
     Indication: DRUG USE FOR UNKNOWN INDICATION
     Route: 065
  9. SIMVASTATIN [Concomitant]
     Indication: DRUG USE FOR UNKNOWN INDICATION
     Route: 065

REACTIONS (12)
  - CARDIAC FAILURE [None]
  - CORONARY ARTERY DISEASE [None]
  - HAEMODYNAMIC INSTABILITY [None]
  - HEPARIN-INDUCED THROMBOCYTOPENIA [None]
  - HYPERLIPIDAEMIA [None]
  - MITRAL VALVE INCOMPETENCE [None]
  - MITRAL VALVE REPLACEMENT [None]
  - MULTI-ORGAN FAILURE [None]
  - OPERATIVE HAEMORRHAGE [None]
  - RENAL IMPAIRMENT [None]
  - RESPIRATORY FAILURE [None]
  - TRANSFUSION-RELATED ACUTE LUNG INJURY [None]
